FAERS Safety Report 18506328 (Version 1)
Quarter: 2020Q4

REPORT INFORMATION
  Report Type: Spontaneous
  Country: IT (occurrence: IT)
  Receive Date: 20201116
  Receipt Date: 20201116
  Transmission Date: 20210114
  Serious: Yes (Life-Threatening, Hospitalization, Other)
  Sender: FDA-Public Use
  Company Number: IT-PFIZER INC-2020450818

PATIENT
  Age: 37 Year
  Sex: Male
  Weight: 80 kg

DRUGS (2)
  1. BINIMETINIB [Suspect]
     Active Substance: BINIMETINIB
     Indication: MALIGNANT MELANOMA
     Dosage: 90 MG, DAILY
     Route: 048
     Dates: start: 20201026, end: 20201029
  2. ENCORAFENIB [Suspect]
     Active Substance: ENCORAFENIB
     Indication: MALIGNANT MELANOMA
     Dosage: 450 MG, DAILY
     Route: 048
     Dates: start: 20201026, end: 20201029

REACTIONS (4)
  - Ecchymosis [Unknown]
  - Disseminated intravascular coagulation [Unknown]
  - Gingival bleeding [Unknown]
  - Thrombocytopenia [Unknown]

NARRATIVE: CASE EVENT DATE: 20201029
